FAERS Safety Report 4570203-4 (Version None)
Quarter: 2005Q1

REPORT INFORMATION
  Report Type: 
  Country: None (occurrence: None)
  Receive Date: 20050202
  Receipt Date: 20050118
  Transmission Date: 20050727
  Serious: No
  Sender: FDA-Public Use
  Company Number: 2005-BP-00701RO

PATIENT
  Age: 26 Year
  Sex: Female

DRUGS (4)
  1. LITHIUM CARBONATE [Suspect]
     Indication: BIPOLAR DISORDER
     Dosage: 900 MG/DAY, PO
     Route: 048
  2. TOPIRAMATE [Suspect]
     Indication: BIPOLAR DISORDER
     Dosage: 75 MG/DAY, PO
     Route: 048
  3. VALPROATE SODIUM [Concomitant]
  4. CLONAZEPAM [Concomitant]

REACTIONS (9)
  - CONFUSIONAL STATE [None]
  - DISTURBANCE IN ATTENTION [None]
  - DYSPHORIA [None]
  - LETHARGY [None]
  - MANIA [None]
  - REFUSAL OF TREATMENT BY PATIENT [None]
  - SKIN DISORDER [None]
  - THERAPEUTIC AGENT TOXICITY [None]
  - THERAPY NON-RESPONDER [None]
